FAERS Safety Report 7916764-6 (Version None)
Quarter: 2011Q4

REPORT INFORMATION
  Report Type: 
  Country: None (occurrence: None)
  Receive Date: 20111114
  Receipt Date: 20111031
  Transmission Date: 20120403
  Serious: Yes (Life-Threatening, Other)
  Sender: FDA-Public Use
  Company Number: JPI-P-017972

PATIENT
  Age: 41 Year
  Sex: Female

DRUGS (3)
  1. ZOLPIDEM TARTRATE [Concomitant]
  2. XYREM [Suspect]
     Indication: SUICIDE ATTEMPT
     Dosage: 4.5 GM (2.25 GM, 2 IN 1 D), ORAL
     Route: 048
     Dates: start: 20111013, end: 20111001
  3. LORAZEPAM [Concomitant]

REACTIONS (5)
  - SUICIDE ATTEMPT [None]
  - OVERDOSE [None]
  - MALAISE [None]
  - CARDIO-RESPIRATORY ARREST [None]
  - CARDIAC DISORDER [None]
